FAERS Safety Report 15423932 (Version 1)
Quarter: 2018Q3

REPORT INFORMATION
  Report Type: Report from Study
  Country: US (occurrence: US)
  Receive Date: 20180925
  Receipt Date: 20180925
  Transmission Date: 20181010
  Serious: Yes (Other)
  Sender: FDA-Public Use
  Company Number: PHEH2015US001102

PATIENT
  Sex: Female
  Weight: 72 kg

DRUGS (1)
  1. GILENYA [Suspect]
     Active Substance: FINGOLIMOD HYDROCHLORIDE
     Indication: MULTIPLE SCLEROSIS
     Dosage: 0.5 MG, QD
     Route: 048
     Dates: start: 2011

REACTIONS (11)
  - Gait disturbance [Unknown]
  - Hypoaesthesia [Unknown]
  - Hypertonia [Unknown]
  - Muscle spasms [Unknown]
  - Multiple sclerosis relapse [Unknown]
  - Cognitive disorder [Unknown]
  - Stress urinary incontinence [Unknown]
  - Poor quality sleep [Unknown]
  - Paraesthesia [Unknown]
  - Fatigue [Unknown]
  - Balance disorder [Unknown]
